FAERS Safety Report 9253831 (Version 2)
Quarter: 2013Q2

REPORT INFORMATION
  Report Type: Spontaneous
  Country: US (occurrence: US)
  Receive Date: 20130425
  Receipt Date: 20130517
  Transmission Date: 20140414
  Serious: Yes (Death, Hospitalization, Other)
  Sender: FDA-Public Use
  Company Number: US-AMGEN-USASP2013028039

PATIENT
  Age: 81 Year
  Sex: Female
  Weight: 54.7 kg

DRUGS (25)
  1. PROLIA [Suspect]
     Indication: OSTEOPOROSIS
     Dosage: UNK
     Dates: start: 201206
  2. METHOTREXATE [Concomitant]
     Dosage: 7.5 MG, UNK
  3. REMICADE [Concomitant]
     Dosage: 600 MG, Q7WK
  4. ATENOLOL [Concomitant]
  5. COZAAR [Concomitant]
  6. NORVASC [Concomitant]
     Dosage: 5 MG, QD
  7. CITALOPRAM [Concomitant]
  8. PRILOSEC                           /00661201/ [Concomitant]
     Dosage: 20 MG, UNK
  9. FOLIC ACID [Concomitant]
  10. CLONAZEPAM [Concomitant]
  11. ACETAMINOPHEN [Concomitant]
     Dosage: 650 MG, AS NECESSARY
  12. CALCIUM [Concomitant]
  13. VITAMIN D /00107901/ [Concomitant]
  14. CHLORPHENIRAMINE HYDROCHLORIDE [Concomitant]
     Dosage: 5 ML, AS NECESSARY
  15. CYANOCOBALAMIN [Concomitant]
     Dosage: 500 MUG, UNK
  16. ENOXAPARIN [Concomitant]
     Dosage: 30 MG, QD
  17. LEVOTHYROXIN [Concomitant]
     Dosage: 75 MUG, UNK
  18. MAGNESIUM SULFATE [Concomitant]
     Dosage: UNK UNK, AS NECESSARY
  19. MEROPENEM [Concomitant]
     Dosage: 500 MG, UNK
  20. METHYLPREDNISOLONE [Concomitant]
     Dosage: 20 MG, BID
  21. ONDANSETRON [Concomitant]
     Dosage: 4 MG, AS NECESSARY
  22. POTASSIUM CHLORIDE [Concomitant]
     Dosage: 40 MEQ, AS NECESSARY
  23. ALBUTEROL                          /00139501/ [Concomitant]
     Dosage: 3 ML, UNK
  24. IPRATROPIUM [Concomitant]
     Dosage: 3 UNK, UNK
  25. SODIUM CHLORIDE [Concomitant]
     Dosage: 3 UNK, UNK

REACTIONS (7)
  - Death [Fatal]
  - Acute respiratory failure [Unknown]
  - Dyspnoea [Unknown]
  - Cardiac failure [Unknown]
  - Cardiomegaly [Unknown]
  - Rheumatoid arthritis [Unknown]
  - Urinary tract infection [Unknown]
